FAERS Safety Report 10340374 (Version 2)
Quarter: 2015Q2

REPORT INFORMATION
  Report Type: Spontaneous
  Country: IT (occurrence: IT)
  Receive Date: 20140724
  Receipt Date: 20150608
  Transmission Date: 20150821
  Serious: Yes (Hospitalization)
  Sender: FDA-Public Use
  Company Number: IT-MYLANLABS-2014S1016742

PATIENT

DRUGS (5)
  1. AMIODARONE [Interacting]
     Active Substance: AMIODARONE
     Indication: ATRIAL FIBRILLATION
  2. AMIODARONE [Interacting]
     Active Substance: AMIODARONE
     Indication: OFF LABEL USE
     Dosage: 200 MG, QD
  3. AMIODARONE [Suspect]
     Active Substance: AMIODARONE
     Indication: RENAL TRANSPLANT
     Dosage: 600 MG, QD
     Route: 065
     Dates: start: 201110
  4. CERTICAN [Interacting]
     Active Substance: EVEROLIMUS
     Indication: IMMUNOSUPPRESSANT DRUG THERAPY
  5. CERTICAN [Interacting]
     Active Substance: EVEROLIMUS
     Indication: RENAL TRANSPLANT
     Dosage: 1.75 MG, QD
     Route: 065
     Dates: start: 2008

REACTIONS (3)
  - Pulmonary toxicity [Recovered/Resolved]
  - Drug interaction [Recovered/Resolved]
  - Malaise [Recovered/Resolved]

NARRATIVE: CASE EVENT DATE: 201112
